FAERS Safety Report 4679367-5 (Version None)
Quarter: 2005Q2

REPORT INFORMATION
  Report Type: 
  Country: None (occurrence: None)
  Receive Date: 20050531
  Receipt Date: 20050516
  Transmission Date: 20051028
  Serious: Yes (Other)
  Sender: FDA-Public Use
  Company Number: B0376790A

PATIENT
  Sex: Female

DRUGS (4)
  1. PAXIL [Suspect]
     Indication: DEPRESSION
     Dates: start: 20011101
  2. AMITRIPTYLINE [Concomitant]
  3. FLUOXETINE [Concomitant]
  4. HRT [Concomitant]

REACTIONS (18)
  - AGITATION [None]
  - AMNESIA [None]
  - ANOREXIA [None]
  - ANXIETY [None]
  - APATHY [None]
  - CONDITION AGGRAVATED [None]
  - DELUSION [None]
  - DRUG INTOLERANCE [None]
  - DRUG WITHDRAWAL SYNDROME [None]
  - EXTRAPYRAMIDAL DISORDER [None]
  - FATIGUE [None]
  - HALLUCINATION [None]
  - HYPOCHONDRIASIS [None]
  - NIGHTMARE [None]
  - PANIC ATTACK [None]
  - SELF-MEDICATION [None]
  - SUICIDAL IDEATION [None]
  - TREMOR [None]
